FAERS Safety Report 10797910 (Version 1)
Quarter: 2015Q1

REPORT INFORMATION
  Report Type: Report from Study
  Country: US (occurrence: US)
  Receive Date: 20150216
  Receipt Date: 20150216
  Transmission Date: 20150721
  Serious: No
  Sender: FDA-Public Use
  Company Number: US-ABBVIE-14K-163-1233449-00

PATIENT
  Sex: Female

DRUGS (1)
  1. HUMIRA [Suspect]
     Active Substance: ADALIMUMAB
     Indication: RHEUMATOID ARTHRITIS

REACTIONS (11)
  - Fungal infection [Unknown]
  - Fatigue [Unknown]
  - Candida infection [Unknown]
  - Pollakiuria [Unknown]
  - Joint injury [Recovered/Resolved]
  - Arthritis [Recovered/Resolved]
  - Joint swelling [Recovered/Resolved]
  - Gait disturbance [Recovered/Resolved]
  - Micturition urgency [Unknown]
  - Bronchitis [Unknown]
  - Fall [Recovered/Resolved]

NARRATIVE: CASE EVENT DATE: 2014
